FAERS Safety Report 4667216-0 (Version None)
Quarter: 2005Q2

REPORT INFORMATION
  Report Type: 
  Country: None (occurrence: None)
  Receive Date: 20050520
  Receipt Date: 20040924
  Transmission Date: 20051028
  Serious: No
  Sender: FDA-Public Use
  Company Number: US-BRISTOL-MYERS SQUIBB COMPANY-12711891

PATIENT
  Age: 79 Year
  Sex: Female
  Weight: 51 kg

DRUGS (9)
  1. SINEMET [Suspect]
     Indication: PARKINSON'S DISEASE
     Dosage: DOSAGE: 25MG/100MG
     Route: 048
  2. SINEMET [Suspect]
     Indication: PARKINSON'S DISEASE
     Dosage: DOSAGE: 25MG/100MG
     Route: 048
  3. ISOSORBIDE MONONITRATE [Concomitant]
  4. VERAPAMIL [Concomitant]
  5. REQUIP [Concomitant]
  6. VITAMIN E [Concomitant]
  7. VIT C TAB [Concomitant]
  8. CALCIUM GLUCONATE [Concomitant]
  9. SLEEP AID [Concomitant]

REACTIONS (1)
  - HALLUCINATION [None]
